FAERS Safety Report 9358927 (Version 1)
Quarter: 2013Q2

REPORT INFORMATION
  Report Type: Spontaneous
  Country: DK (occurrence: DK)
  Receive Date: 20130620
  Receipt Date: 20130620
  Transmission Date: 20140414
  Serious: Yes (Other)
  Sender: FDA-Public Use
  Company Number: DK-TEVA-370639ISR

PATIENT
  Age: 38 Year
  Sex: Female

DRUGS (7)
  1. FLUCONAZOLE [Suspect]
     Indication: VULVOVAGINAL CANDIDIASIS
     Dosage: SINGLE DOSE
     Route: 048
  2. FLUCONAZOLE [Suspect]
     Dosage: SINGLE ORAL DOSE
     Route: 048
  3. FLUCONAZOLE [Suspect]
     Dosage: SINGLE ORAL DOSE
     Route: 048
  4. DOXYCYCLINE [Suspect]
     Indication: ERYTHEMA MIGRANS
     Route: 065
  5. INTERFERON [Concomitant]
     Indication: MULTIPLE SCLEROSIS
     Route: 065
  6. DEXIBUPROFEN [Concomitant]
     Indication: INFLUENZA LIKE ILLNESS
     Route: 065
  7. DEXIBUPROFEN [Concomitant]
     Route: 048

REACTIONS (10)
  - Drug eruption [Unknown]
  - Erythema multiforme [Unknown]
  - Skin hyperpigmentation [Unknown]
  - Treatment failure [Unknown]
  - Pruritus [Unknown]
  - Paraesthesia [Unknown]
  - Drug administration error [Unknown]
  - Oral disorder [Unknown]
  - Skin lesion [Unknown]
  - Scab [Unknown]
